FAERS Safety Report 6286919-8 (Version None)
Quarter: 2009Q3

REPORT INFORMATION
  Report Type: 
  Country: None (occurrence: None)
  Receive Date: 20090728
  Receipt Date: 20090720
  Transmission Date: 20100115
  Serious: Yes (Other)
  Sender: FDA-Public Use
  Company Number: US-JNJFOC-20090708287

PATIENT
  Sex: Female

DRUGS (3)
  1. NIZORAL [Suspect]
     Indication: DRUG USE FOR UNKNOWN INDICATION
     Route: 048
  2. PROMETHAZINE [Concomitant]
     Route: 065
  3. TRAMADOL [Concomitant]
     Indication: HEADACHE
     Route: 065

REACTIONS (1)
  - HEPATITIS [None]
